FAERS Safety Report 6685098-2 (Version None)
Quarter: 2010Q2

REPORT INFORMATION
  Report Type: 
  Country: None (occurrence: None)
  Receive Date: 20100416
  Receipt Date: 20100409
  Transmission Date: 20101027
  Serious: Yes (Hospitalization)
  Sender: FDA-Public Use
  Company Number: B0647664A

PATIENT
  Age: 82 Year
  Sex: Female

DRUGS (3)
  1. DIGOXIN [Suspect]
     Route: 065
  2. DIURETICS [Suspect]
     Route: 065
  3. ANTICOAGULANTS [Concomitant]

REACTIONS (11)
  - ANURIA [None]
  - BLOOD CREATININE INCREASED [None]
  - CARDIOACTIVE DRUG LEVEL INCREASED [None]
  - CONFUSIONAL STATE [None]
  - DEHYDRATION [None]
  - HAEMODIALYSIS [None]
  - HYPERKALAEMIA [None]
  - NODAL RHYTHM [None]
  - PSYCHOMOTOR HYPERACTIVITY [None]
  - RENAL FAILURE [None]
  - THERAPEUTIC AGENT TOXICITY [None]
